FAERS Safety Report 9096345 (Version 1)
Quarter: 2013Q1

REPORT INFORMATION
  Report Type: Spontaneous
  Country: US (occurrence: US)
  Receive Date: 20130207
  Receipt Date: 20130207
  Transmission Date: 20140127
  Serious: Yes (Hospitalization, Other)
  Sender: FDA-Public Use
  Company Number: US-ELI_LILLY_AND_COMPANY-US201301009964

PATIENT
  Age: 61 Year
  Sex: Female

DRUGS (2)
  1. FORTEO [Suspect]
     Indication: OSTEOPOROSIS
     Dosage: 20 UG, QD
     Dates: start: 201003, end: 201203
  2. EVISTA [Suspect]
     Indication: OSTEOPOROSIS
     Dosage: UNK
     Dates: start: 201203

REACTIONS (4)
  - Upper limb fracture [Unknown]
  - Upper limb fracture [Unknown]
  - Lower limb fracture [Unknown]
  - Fall [Unknown]
